FAERS Safety Report 4845355-9 (Version None)
Quarter: 2005Q4

REPORT INFORMATION
  Report Type: 
  Country: None (occurrence: None)
  Receive Date: 20051205
  Receipt Date: 20051201
  Transmission Date: 20060501
  Serious: Yes (Other)
  Sender: FDA-Public Use
  Company Number: FRAGNR02051

PATIENT
  Age: 62 Year
  Sex: Female

DRUGS (6)
  1. AMOXICILLIN AND CLAVULANATE POTASSIUM [Suspect]
     Dosage: 4UNIT PER DAY
     Route: 048
  2. SERETIDE [Suspect]
     Dosage: 2UNIT PER DAY
     Route: 055
  3. COMBIVENT [Suspect]
     Dosage: 3UNIT PER DAY
     Route: 048
  4. ENALAPRIL MALEATE AND HYDROCHLOROTHIAZIDE [Suspect]
     Dosage: 1UNIT PER DAY
     Route: 048
  5. INIPOMP [Suspect]
     Dosage: 1UNIT PER DAY
     Route: 048
  6. TAHOR [Suspect]
     Dosage: 1UNIT PER DAY
     Route: 048

REACTIONS (1)
  - ANGIONEUROTIC OEDEMA [None]
